FAERS Safety Report 17832089 (Version 1)
Quarter: 2020Q2

REPORT INFORMATION
  Report Type: Spontaneous
  Country: US (occurrence: US)
  Receive Date: 20200527
  Receipt Date: 20200527
  Transmission Date: 20200714
  Serious: No
  Sender: FDA-Public Use
  Company Number: US-ROCHE-2546249

PATIENT
  Age: 69 Year
  Sex: Female
  Weight: 65.83 kg

DRUGS (1)
  1. OCREVUS [Suspect]
     Active Substance: OCRELIZUMAB
     Indication: PRIMARY PROGRESSIVE MULTIPLE SCLEROSIS
     Route: 042
     Dates: start: 2017

REACTIONS (5)
  - Thyroid mass [Not Recovered/Not Resolved]
  - Haemorrhage [Unknown]
  - Sensation of foreign body [Not Recovered/Not Resolved]
  - Swelling [Not Recovered/Not Resolved]
  - Magnetic resonance imaging brain abnormal [Unknown]

NARRATIVE: CASE EVENT DATE: 20200206
